FAERS Safety Report 14945299 (Version 1)
Quarter: 2018Q2

REPORT INFORMATION
  Report Type: Spontaneous
  Country: US (occurrence: US)
  Receive Date: 20180529
  Receipt Date: 20180529
  Transmission Date: 20180711
  Serious: No
  Sender: FDA-Public Use
  Company Number: US-BIODELIVERY SCIENCES INTERNATIONAL-2017BDSI0231

PATIENT
  Age: 40 Year
  Sex: Female
  Weight: 53.57 kg

DRUGS (9)
  1. ARMODAFINIL. [Concomitant]
     Active Substance: ARMODAFINIL
     Indication: NARCOLEPSY
     Route: 048
  2. CLOPIDOGREL BISULFATE. [Concomitant]
     Active Substance: CLOPIDOGREL BISULFATE
     Indication: THROMBOSIS PROPHYLAXIS
     Route: 048
  3. NO DRUG NAME [Concomitant]
     Indication: VITAMIN SUPPLEMENTATION
  4. OXYBATE SODIUM [Concomitant]
     Active Substance: SODIUM OXYBATE
     Indication: NARCOLEPSY
     Route: 048
  5. NICOTINIC ACID/MECLOZINE HYDROCHLORIDE [Concomitant]
     Indication: DIZZINESS
     Route: 048
  6. BUPRENORPHINE. [Suspect]
     Active Substance: BUPRENORPHINE
     Indication: PAIN
     Route: 002
     Dates: start: 20171023
  7. ONDANSETRON [Concomitant]
     Active Substance: ONDANSETRON
     Indication: NAUSEA
     Route: 048
  8. BUPROPION HYDROCHLORIDE. [Concomitant]
     Active Substance: BUPROPION HYDROCHLORIDE
     Indication: PRODUCT USED FOR UNKNOWN INDICATION
     Route: 048
  9. NEBIVOLOL HYDROCHLORIDE [Concomitant]
     Active Substance: NEBIVOLOL HYDROCHLORIDE
     Indication: POSTURAL ORTHOSTATIC TACHYCARDIA SYNDROME
     Route: 048

REACTIONS (2)
  - Headache [Not Recovered/Not Resolved]
  - Condition aggravated [Recovering/Resolving]

NARRATIVE: CASE EVENT DATE: 20171023
